FAERS Safety Report 17456324 (Version 1)
Quarter: 2020Q1

REPORT INFORMATION
  Report Type: Spontaneous
  Country: BE (occurrence: BE)
  Receive Date: 20200225
  Receipt Date: 20200225
  Transmission Date: 20200409
  Serious: Yes (Other)
  Sender: FDA-Public Use
  Company Number: BE-BIOVITRUM-2019BE4502

PATIENT
  Age: 5 Year
  Sex: Male

DRUGS (1)
  1. ORFADIN [Suspect]
     Active Substance: NITISINONE
     Indication: TYROSINAEMIA
     Dosage: STARTED TREATMENT AT AGE 6 MONTHS?2 MG/KG

REACTIONS (2)
  - Acute hepatic failure [Recovering/Resolving]
  - Ultrasound liver abnormal [Not Recovered/Not Resolved]
